FAERS Safety Report 10886095 (Version 2)
Quarter: 2015Q3

REPORT INFORMATION
  Report Type: Spontaneous
  Country: JP (occurrence: JP)
  Receive Date: 20150304
  Receipt Date: 20150710
  Transmission Date: 20151125
  Serious: Yes (Hospitalization)
  Sender: FDA-Public Use
  Company Number: JP-PFIZER INC-2015075136

PATIENT
  Age: 65 Year
  Sex: Male
  Weight: 61 kg

DRUGS (8)
  1. CEFAMEZIN [Concomitant]
     Active Substance: CEFAZOLIN
     Dosage: UNK
     Dates: start: 20131112, end: 20131126
  2. KYTRIL [Concomitant]
     Active Substance: GRANISETRON HYDROCHLORIDE
     Dosage: UNK
     Dates: start: 20131105, end: 20131105
  3. DECADRON [Concomitant]
     Active Substance: DEXAMETHASONE
     Dosage: UNK
     Dates: start: 20131105, end: 20131105
  4. POLARAMINE [Concomitant]
     Active Substance: DEXCHLORPHENIRAMINE MALEATE
     Dosage: UNK
     Dates: start: 20131105, end: 20131105
  5. PREDONINE [Concomitant]
     Active Substance: PREDNISOLONE\PREDNISOLONE ACETATE\PREDNISOLONE SODIUM SUCCINATE
     Dosage: UNK
     Dates: start: 20131114, end: 20131120
  6. CAMPTO [Suspect]
     Active Substance: IRINOTECAN
     Indication: RECTAL CANCER
     Dosage: 180 MG (104.1 MG/M2), ONCE A DAY
     Route: 041
     Dates: start: 20131105, end: 20131105
  7. ERBITUX [Concomitant]
     Active Substance: CETUXIMAB
     Indication: RECTAL CANCER
     Dosage: 600 MG, ONCE A DAY
     Route: 041
     Dates: start: 20131105, end: 20131105
  8. OPYSTAN [Concomitant]
     Active Substance: MEPERIDINE
     Dosage: UNK
     Dates: start: 20131114

REACTIONS (1)
  - Pneumomediastinum [Recovered/Resolved]

NARRATIVE: CASE EVENT DATE: 20131109
